FAERS Safety Report 8937108 (Version 1)
Quarter: 2012Q4

REPORT INFORMATION
  Report Type: Spontaneous
  Country: US (occurrence: None)
  Receive Date: 20121128
  Receipt Date: 20121128
  Transmission Date: 20130627
  Serious: Yes (Hospitalization)
  Sender: FDA-Public Use
  Company Number: None

PATIENT
  Age: 65 Year
  Sex: Female

DRUGS (1)
  1. IMIPENEM [Suspect]

REACTIONS (4)
  - Mental status changes [None]
  - Clostridium difficile infection [None]
  - Ammonia increased [None]
  - Bacteraemia [None]
